FAERS Safety Report 7860048-1 (Version None)
Quarter: 2011Q4

REPORT INFORMATION
  Report Type: 
  Country: None (occurrence: None)
  Receive Date: 20111025
  Receipt Date: 20111018
  Transmission Date: 20120403
  Serious: Yes (Hospitalization)
  Sender: FDA-Public Use
  Company Number: AUR-APL-2011-05510

PATIENT
  Age: 46 Year
  Sex: Female
  Weight: 89 kg

DRUGS (1)
  1. SERTRALINE HYDROCHLORIDE [Suspect]
     Indication: SOCIAL PHOBIA
     Dosage: (100 MG), ORAL
     Route: 048
     Dates: start: 20090301, end: 20100501

REACTIONS (7)
  - PSYCHOTIC DISORDER [None]
  - AFFECTIVE DISORDER [None]
  - SELF-INJURIOUS IDEATION [None]
  - MANIA [None]
  - PARAESTHESIA [None]
  - DRUG WITHDRAWAL SYNDROME [None]
  - EMOTIONAL DISORDER [None]
